FAERS Safety Report 12597320 (Version 1)
Quarter: 2016Q3

REPORT INFORMATION
  Report Type: Spontaneous
  Country: US (occurrence: None)
  Receive Date: 20160726
  Receipt Date: 20160726
  Transmission Date: 20161109
  Serious: No
  Sender: FDA-Public Use
  Company Number: None

PATIENT
  Sex: Male
  Weight: 97.07 kg

DRUGS (1)
  1. AFINITOR [Suspect]
     Active Substance: EVEROLIMUS
     Indication: NEUROENDOCRINE TUMOUR
     Dosage: 1 TAB DAILY PER 28 DAYS
     Route: 048
     Dates: start: 20160621

REACTIONS (3)
  - Stomatitis [None]
  - Joint swelling [None]
  - Peripheral swelling [None]
